FAERS Safety Report 4772378-0 (Version None)
Quarter: 2005Q3

REPORT INFORMATION
  Report Type: 
  Country: None (occurrence: None)
  Receive Date: 20050919
  Receipt Date: 20050118
  Transmission Date: 20060218
  Serious: No
  Sender: FDA-Public Use
  Company Number: US-BRISTOL-MYERS SQUIBB COMPANY-12851895

PATIENT
  Age: 82 Year
  Sex: Female

DRUGS (1)
  1. KENALOG-40 [Suspect]
     Route: 051
     Dates: start: 20050110

REACTIONS (1)
  - MALAISE [None]
